FAERS Safety Report 17477998 (Version 2)
Quarter: 2020Q2

REPORT INFORMATION
  Report Type: Spontaneous
  Country: US (occurrence: US)
  Receive Date: 20200228
  Receipt Date: 20200406
  Transmission Date: 20200713
  Serious: No
  Sender: FDA-Public Use
  Company Number: US-SA-2020SA051581

PATIENT
  Age: 70 Year
  Sex: Male

DRUGS (1)
  1. CAPRELSA [Suspect]
     Active Substance: VANDETANIB
     Indication: THYROID CANCER
     Dosage: 300 MG, QD
     Route: 048
     Dates: start: 20200129

REACTIONS (4)
  - Diarrhoea [Unknown]
  - Epistaxis [Unknown]
  - Blood pressure increased [Unknown]
  - Heart rate decreased [Unknown]
